FAERS Safety Report 19244303 (Version 1)
Quarter: 2021Q2

REPORT INFORMATION
  Report Type: Spontaneous
  Country: NO (occurrence: NO)
  Receive Date: 20210511
  Receipt Date: 20210511
  Transmission Date: 20210717
  Serious: Yes (Hospitalization)
  Sender: FDA-Public Use
  Company Number: NO-ELI_LILLY_AND_COMPANY-NO202105001538

PATIENT
  Age: 54 Year
  Sex: Male

DRUGS (3)
  1. ZYPADHERA [Suspect]
     Active Substance: OLANZAPINE PAMOATE
     Indication: SCHIZOPHRENIA
     Dosage: 405 MG, EVERY 14 DAYS
     Route: 030
     Dates: start: 20181220
  2. ZYPADHERA [Suspect]
     Active Substance: OLANZAPINE PAMOATE
     Indication: SCHIZOPHRENIA
     Dosage: 405 MG, EVERY 14 DAYS
     Route: 030
     Dates: start: 20181220
  3. ZYPADHERA [Suspect]
     Active Substance: OLANZAPINE PAMOATE
     Indication: SCHIZOPHRENIA
     Dosage: 405 MG, EVERY 14 DAYS
     Route: 030
     Dates: start: 20181220

REACTIONS (6)
  - Tachycardia [Recovered/Resolved]
  - Inappropriate schedule of product administration [Unknown]
  - Lethargy [Recovered/Resolved]
  - Dizziness [Recovered/Resolved]
  - Disorganised speech [Recovered/Resolved]
  - Dysarthria [Recovered/Resolved]

NARRATIVE: CASE EVENT DATE: 20210407
